FAERS Safety Report 22251069 (Version 2)
Quarter: 2023Q4

REPORT INFORMATION
  Report Type: Report from Study
  Country: US (occurrence: US)
  Receive Date: 20230425
  Receipt Date: 20231006
  Transmission Date: 20240110
  Serious: Yes (Other)
  Sender: FDA-Public Use
  Company Number: US-SA-2023SA126568

PATIENT
  Age: 61 Year
  Sex: Female

DRUGS (25)
  1. OXALIPLATIN [Suspect]
     Active Substance: OXALIPLATIN
     Indication: Pancreatic carcinoma metastatic
     Dosage: 116 MG (116 MG DAY 1 AND DAY 15 OF EACH 28 DAY CYCLE)
     Route: 042
     Dates: start: 20221031, end: 20230404
  2. BUDIGALIMAB [Suspect]
     Active Substance: BUDIGALIMAB
     Indication: Pancreatic carcinoma metastatic
     Dosage: 500 MG, Q4W (Q4W500 MG; 3 OF EACH 28 DAY CYCLE, EVERY 4 WEEKS)
     Route: 042
     Dates: start: 20221102, end: 20230309
  3. FLUOROURACIL [Suspect]
     Active Substance: FLUOROURACIL
     Indication: Pancreatic carcinoma metastatic
     Dosage: 4454.4 MG; DAY 1, 3, 15 AND 17 OF EACH 28 DAY CYCLE
     Route: 042
     Dates: start: 20221031, end: 20230406
  4. LEUCOVORIN [Suspect]
     Active Substance: LEUCOVORIN\LEUCOVORIN CALCIUM
     Indication: Pancreatic carcinoma metastatic
     Dosage: 928 MG; 1 AND DAY 15 OF EACH 28 DAY CYCLE
     Route: 042
     Dates: start: 20221031, end: 20230404
  5. IRINOTECAN [Suspect]
     Active Substance: IRINOTECAN
     Indication: Pancreatic carcinoma metastatic
     Dosage: 278.4 MG; DAY 1 AND DAY 15 OF EACH 28 DAY CYCLE
     Route: 042
     Dates: start: 20221031, end: 20230404
  6. EMLA [Concomitant]
     Active Substance: LIDOCAINE\PRILOCAINE
     Indication: Pain management
     Dosage: 2.5 %, PRN
     Dates: start: 20221018
  7. IBUPROFEN [Concomitant]
     Active Substance: IBUPROFEN
     Indication: Back pain
     Dosage: 200 MG, PRN
     Dates: start: 20221002
  8. LANTUS [Concomitant]
     Active Substance: INSULIN GLARGINE
     Indication: Diabetes mellitus
     Dosage: 32 IU, QD; EVERY EVENING
     Dates: start: 202209
  9. ZOLOFT [Concomitant]
     Active Substance: SERTRALINE HYDROCHLORIDE
     Indication: Antidepressant therapy
     Dosage: 50 MG, QD
     Dates: start: 20221003
  10. PROTONIX [Concomitant]
     Active Substance: PANTOPRAZOLE SODIUM
     Indication: Dyspepsia
     Dosage: 40 MG, 2/DAYS
     Dates: start: 202209
  11. MELATONIN [Concomitant]
     Active Substance: MELATONIN
     Indication: Sleep disorder therapy
     Dosage: 3 MG, QD
     Dates: start: 202209
  12. INSULIN PORK\INSULIN PURIFIED PORK [Concomitant]
     Active Substance: INSULIN PORK\INSULIN PURIFIED PORK
     Indication: Diabetes mellitus
     Dosage: 100 IU/ML, PRN
     Dates: start: 202209
  13. HUMALOG JUNIOR KWIKPEN [Concomitant]
     Active Substance: INSULIN LISPRO
     Indication: Diabetes mellitus
     Dosage: 9 IU;3/DAYS
     Dates: start: 202209
  14. TUCKS [PARAFFIN, LIQUID;PRAMOCAINE HYDROCHLORIDE;ZINC OXIDE] [Concomitant]
     Indication: Haemorrhoids
     Dosage: UNK UNK, PRN; MEDICATED COOLING PADS, 1 APPLICATION
     Dates: start: 202210
  15. COMPAZINE [Concomitant]
     Active Substance: PROCHLORPERAZINE MALEATE
     Indication: Prophylaxis of nausea and vomiting
     Dosage: 10 MG, Q6H
     Dates: start: 202210
  16. ZOFRAN [Concomitant]
     Active Substance: ONDANSETRON HYDROCHLORIDE
     Indication: Prophylaxis of nausea and vomiting
     Dosage: 8 MG, PRN
     Dates: start: 202210
  17. IMODIUM [Concomitant]
     Active Substance: LOPERAMIDE HYDROCHLORIDE
     Indication: Diarrhoea
     Dosage: 2 MG, PRN
     Dates: start: 202210
  18. AMBIEN [Concomitant]
     Active Substance: ZOLPIDEM TARTRATE
     Indication: Insomnia
     Dosage: 5 MG, QD
     Dates: start: 20221128
  19. ELIQUIS [Concomitant]
     Active Substance: APIXABAN
     Indication: Embolism
     Dosage: 10 MG;2/DAYS
     Dates: start: 20230106
  20. ACETAMINOPHEN [Concomitant]
     Active Substance: ACETAMINOPHEN
     Indication: Pain
     Dosage: 650 MG, PRN
     Dates: start: 20230220
  21. NEURONTIN [Concomitant]
     Active Substance: GABAPENTIN
     Indication: Pain
     Dosage: 300 MG, QD
     Dates: start: 20230118
  22. ROXICODONE [Concomitant]
     Active Substance: OXYCODONE HYDROCHLORIDE
     Indication: Pain
     Dosage: 5 MG;2/DAYS
     Dates: start: 20230118
  23. DULCOLAX (BISACODYL) [Concomitant]
     Active Substance: BISACODYL
     Indication: Constipation prophylaxis
     Dosage: 5 MG, QD
     Dates: start: 202209
  24. OXYCODONE [Concomitant]
     Active Substance: OXYCODONE
     Indication: Pain
     Dosage: 5 MG (5 MG, 6/DAYS)
     Route: 065
     Dates: start: 20230325
  25. ATROPINE [Concomitant]
     Active Substance: ATROPINE
     Indication: Cholinergic syndrome
     Dosage: 0.4 MG, PRN
     Dates: start: 20230123

REACTIONS (1)
  - Back pain [Recovered/Resolved]

NARRATIVE: CASE EVENT DATE: 20230410
